FAERS Safety Report 17138644 (Version 1)
Quarter: 2019Q4

REPORT INFORMATION
  Report Type: Spontaneous
  Country: US (occurrence: US)
  Receive Date: 20191211
  Receipt Date: 20191211
  Transmission Date: 20200122
  Serious: No
  Sender: FDA-Public Use
  Company Number: US-UCBSA-2016026938

PATIENT
  Sex: Male

DRUGS (2)
  1. VIMPAT [Suspect]
     Active Substance: LACOSAMIDE
     Dosage: TITRATED DOSE OF 50MG TWICE A DAY FOR A WEEK
     Dates: start: 201607
  2. VIMPAT [Suspect]
     Active Substance: LACOSAMIDE
     Indication: SEIZURE
     Dosage: 50MG EVERY NIGHT FOR A WEEK
     Dates: start: 20160708, end: 201607

REACTIONS (1)
  - No adverse event [Unknown]
